FAERS Safety Report 9222041 (Version 1)
Quarter: 2013Q2

REPORT INFORMATION
  Report Type: Spontaneous
  Country: US (occurrence: None)
  Receive Date: 20130410
  Receipt Date: 20130410
  Transmission Date: 20140414
  Serious: Yes (Hospitalization)
  Sender: FDA-Public Use
  Company Number: None

PATIENT
  Age: 79 Year
  Sex: Male
  Weight: 76.3 kg

DRUGS (11)
  1. COUMADIN [Suspect]
     Indication: EMBOLIC STROKE
     Dosage: 4MG  SSTTH  PO?CHRONIC
     Route: 048
  2. COUMADIN [Suspect]
     Indication: MITRAL VALVE REPLACEMENT
     Dosage: 4MG  SSTTH  PO?CHRONIC
     Route: 048
  3. COUMADIN [Suspect]
     Dosage: 6MG  MWF  PO?CHRONIC
     Route: 048
  4. ASA [Suspect]
  5. CADUET [Concomitant]
  6. COREG [Concomitant]
  7. FUROSEMIDE [Concomitant]
  8. HYDRALAZINE [Concomitant]
  9. LANTUS [Concomitant]
  10. SYNTHROID [Concomitant]
  11. LISINOPRIL [Concomitant]

REACTIONS (4)
  - Anaemia [None]
  - Diverticulum intestinal haemorrhagic [None]
  - Condition aggravated [None]
  - Haematochezia [None]
